FAERS Safety Report 8229570-2 (Version None)
Quarter: 2012Q1

REPORT INFORMATION
  Report Type: 
  Country: None (occurrence: None)
  Receive Date: 20120322
  Receipt Date: 20120313
  Transmission Date: 20120608
  Serious: Yes (Hospitalization)
  Sender: FDA-Public Use
  Company Number: US-ABBOTT-12P-163-0912749-00

PATIENT
  Sex: Female
  Weight: 113.95 kg

DRUGS (3)
  1. HUMIRA [Suspect]
  2. HUMIRA [Suspect]
     Indication: RHEUMATOID ARTHRITIS
     Dates: start: 20080101, end: 20110901
  3. HUMIRA [Suspect]
     Dates: start: 20110901, end: 20111101

REACTIONS (1)
  - OSTEOARTHRITIS [None]
